FAERS Safety Report 6960190-3 (Version None)
Quarter: 2010Q3

REPORT INFORMATION
  Report Type: 
  Country: None (occurrence: None)
  Receive Date: 20100901
  Receipt Date: 20100818
  Transmission Date: 20110219
  Serious: Yes (Other)
  Sender: FDA-Public Use
  Company Number: PHFR2010GB02723

PATIENT
  Sex: Female

DRUGS (5)
  1. IMATINIB [Suspect]
     Indication: GASTROINTESTINAL STROMAL TUMOUR
     Dosage: 300 MG, QD
     Dates: start: 20051221
  2. IMATINIB [Suspect]
     Dosage: 400MG OD
     Dates: start: 20070615, end: 20090715
  3. IMATINIB [Suspect]
     Dosage: 400 MG, BID
     Dates: start: 20090715, end: 20100601
  4. OMEPRAZOLE [Concomitant]
     Dosage: 20MG DAILY
  5. SIMVASTATIN [Concomitant]

REACTIONS (6)
  - BUNDLE BRANCH BLOCK LEFT [None]
  - DRUG TOXICITY [None]
  - FATIGUE [None]
  - GASTROINTESTINAL STROMAL TUMOUR [None]
  - MALIGNANT NEOPLASM PROGRESSION [None]
  - QRS AXIS ABNORMAL [None]
